FAERS Safety Report 12678868 (Version 2)
Quarter: 2016Q4

REPORT INFORMATION
  Report Type: Spontaneous
  Country: US (occurrence: US)
  Receive Date: 20160824
  Receipt Date: 20161007
  Transmission Date: 20170207
  Serious: No
  Sender: FDA-Public Use
  Company Number: US-BRISTOL-MYERS SQUIBB COMPANY-BMS-2016-066776

PATIENT
  Sex: Male

DRUGS (1)
  1. OPDIVO [Suspect]
     Active Substance: NIVOLUMAB
     Indication: PRODUCT USED FOR UNKNOWN INDICATION
     Dosage: 2
     Route: 042
     Dates: start: 201607

REACTIONS (5)
  - Gingival pain [Unknown]
  - Swollen tongue [Unknown]
  - Stomatitis [Unknown]
  - Rash [Unknown]
  - Lip swelling [Unknown]
